FAERS Safety Report 14665481 (Version 1)
Quarter: 2018Q1

REPORT INFORMATION
  Report Type: Spontaneous
  Country: US (occurrence: US)
  Receive Date: 20180321
  Receipt Date: 20180321
  Transmission Date: 20180509
  Serious: Yes (Life-Threatening)
  Sender: FDA-Public Use
  Company Number: PHHY2018US040542

PATIENT
  Age: 68 Year
  Sex: Male

DRUGS (1)
  1. NAFCILLIN [Suspect]
     Active Substance: NAFCILLIN\NAFCILLIN SODIUM
     Indication: STAPHYLOCOCCAL INFECTION
     Route: 042

REACTIONS (2)
  - Drug-induced liver injury [Recovered/Resolved]
  - Jaundice [Recovered/Resolved]
